FAERS Safety Report 16722958 (Version 2)
Quarter: 2019Q3

REPORT INFORMATION
  Report Type: Spontaneous
  Country: US (occurrence: US)
  Receive Date: 20190821
  Receipt Date: 20190830
  Transmission Date: 20191005
  Serious: No
  Sender: FDA-Public Use
  Company Number: US-GLAXOSMITHKLINE-US2019150202

PATIENT
  Sex: Female

DRUGS (1)
  1. VENTOLIN HFA [Suspect]
     Active Substance: ALBUTEROL SULFATE
     Indication: WHEEZING
     Dosage: 2 PUFF(S), BID (AS NEEDED)
     Route: 055
     Dates: start: 20190805

REACTIONS (5)
  - Oropharyngeal pain [Unknown]
  - Wrong technique in product usage process [Unknown]
  - Exposure via skin contact [Unknown]
  - Product label confusion [Unknown]
  - Drug ineffective [Unknown]
